FAERS Safety Report 6973922-5 (Version None)
Quarter: 2010Q3

REPORT INFORMATION
  Report Type: 
  Country: None (occurrence: None)
  Receive Date: 20100907
  Receipt Date: 20100823
  Transmission Date: 20110219
  Serious: Yes (Life-Threatening, Hospitalization)
  Sender: FDA-Public Use
  Company Number: DSA_43522_2010

PATIENT
  Sex: Female

DRUGS (3)
  1. VOXRA (VOXRA - BUPROPION HYDROCHLORIDE EXTENDED RELEASE) (NOT SPECIFIE [Suspect]
     Indication: DEPRESSION
     Dosage: (150 MG QD)
     Dates: start: 20100503
  2. DIAZEPAM [Concomitant]
  3. PREGABALIN [Concomitant]

REACTIONS (2)
  - APPARENT LIFE THREATENING EVENT [None]
  - CEREBRAL HAEMORRHAGE [None]
